FAERS Safety Report 13603455 (Version 1)
Quarter: 2017Q2

REPORT INFORMATION
  Report Type: Spontaneous
  Country: US (occurrence: US)
  Receive Date: 20170601
  Receipt Date: 20170601
  Transmission Date: 20170912
  Serious: Yes (Other)
  Sender: FDA-Public Use
  Company Number: US-OTSUKA-2017_005179

PATIENT
  Sex: Male

DRUGS (1)
  1. SAMSCA [Suspect]
     Indication: PRODUCT USED FOR UNKNOWN INDICATION
     Dosage: 15 MG, SINGLE (ONCE)
     Route: 065
     Dates: start: 201702, end: 201702

REACTIONS (1)
  - Rapid correction of hyponatraemia [Recovering/Resolving]

NARRATIVE: CASE EVENT DATE: 201702
